FAERS Safety Report 8908941 (Version 1)
Quarter: 2012Q4

REPORT INFORMATION
  Report Type: 
  Country: US (occurrence: US)
  Receive Date: 20121114
  Receipt Date: 20121114
  Transmission Date: 20130627
  Serious: No
  Sender: FDA-Public Use
  Company Number: US-MYLANLABS-2012S1013228

PATIENT
  Sex: Female

DRUGS (2)
  1. MAXZIDE [Suspect]
     Indication: HYPERTENSION
     Route: 048
  2. MAXZIDE [Suspect]
     Indication: SWELLING
     Route: 048

REACTIONS (1)
  - Dysphagia [Not Recovered/Not Resolved]
